FAERS Safety Report 5874356-7 (Version None)
Quarter: 2008Q3

REPORT INFORMATION
  Report Type: 
  Country: None (occurrence: None)
  Receive Date: 20080908
  Receipt Date: 20080903
  Transmission Date: 20090109
  Serious: Yes (Disabling)
  Sender: FDA-Public Use
  Company Number: US-MERCK-0809USA00507

PATIENT
  Age: 66 Year
  Sex: Male

DRUGS (4)
  1. ZOCOR [Suspect]
     Indication: BLOOD CHOLESTEROL INCREASED
     Route: 048
     Dates: start: 19920101
  2. HYDROCHLOROTHIAZIDE [Concomitant]
     Route: 065
  3. PROSCAR [Concomitant]
     Route: 048
  4. ASPIRIN [Concomitant]
     Route: 065

REACTIONS (2)
  - PAIN IN EXTREMITY [None]
  - TENDON DISORDER [None]
